FAERS Safety Report 4782515-X (Version None)
Quarter: 2005Q3

REPORT INFORMATION
  Report Type: 
  Country: None (occurrence: None)
  Receive Date: 20050929
  Receipt Date: 20050202
  Transmission Date: 20060218
  Serious: No
  Sender: FDA-Public Use
  Company Number: 2005-00243

PATIENT
  Age: 40 Year
  Sex: Female
  Weight: 77.3 kg

DRUGS (2)
  1. COREG [Suspect]
     Indication: CARDIAC FAILURE
     Dosage: 25MG TWICE PER DAY
     Route: 048
     Dates: start: 20040514
  2. ENALAPRIL [Suspect]
     Indication: CARDIAC FAILURE
     Dosage: 10MG TWICE PER DAY
     Route: 048
     Dates: start: 20040514

REACTIONS (3)
  - ALOPECIA [None]
  - HAIR TEXTURE ABNORMAL [None]
  - TRICHORRHEXIS [None]
